FAERS Safety Report 20682918 (Version 1)
Quarter: 2022Q2

REPORT INFORMATION
  Report Type: Spontaneous
  Country: JP (occurrence: JP)
  Receive Date: 20220407
  Receipt Date: 20220407
  Transmission Date: 20220720
  Serious: Yes (Hospitalization)
  Sender: FDA-Public Use
  Company Number: JP-NOVARTISPH-NVSJ2019JP005824

PATIENT
  Age: 82 Year
  Sex: Male
  Weight: 71.6 kg

DRUGS (4)
  1. TASIGNA [Suspect]
     Active Substance: NILOTINIB
     Indication: Chronic myeloid leukaemia
     Dosage: 300 MG
     Route: 048
     Dates: start: 201711, end: 201801
  2. TASIGNA [Suspect]
     Active Substance: NILOTINIB
     Dosage: 600 MG
     Route: 048
     Dates: start: 201801, end: 201802
  3. TASIGNA [Suspect]
     Active Substance: NILOTINIB
     Dosage: 300 MG
     Route: 048
     Dates: start: 201802, end: 201809
  4. TASIGNA [Suspect]
     Active Substance: NILOTINIB
     Dosage: 400 MG
     Route: 048
     Dates: start: 201809, end: 201912

REACTIONS (3)
  - Myocardial infarction [Recovered/Resolved]
  - Mixed anxiety and depressive disorder [Unknown]
  - Alopecia [Unknown]
